FAERS Safety Report 4318788-7 (Version None)
Quarter: 2004Q1

REPORT INFORMATION
  Report Type: 
  Country: None (occurrence: None)
  Receive Date: 20040318
  Receipt Date: 20040108
  Transmission Date: 20041129
  Serious: Yes (Other)
  Sender: FDA-Public Use
  Company Number: NL-GLAXOSMITHKLINE-B0323270A

PATIENT
  Age: 75 Year
  Sex: Female

DRUGS (2)
  1. ROSIGLITAZONE MALEATE [Suspect]
  2. GLIMEPIRIDE [Concomitant]

REACTIONS (1)
  - ANAEMIA [None]
